FAERS Safety Report 5532390-0 (Version None)
Quarter: 2007Q4

REPORT INFORMATION
  Report Type: 
  Country: None (occurrence: None)
  Receive Date: 20071128
  Receipt Date: 20071114
  Transmission Date: 20080405
  Serious: Yes (Other)
  Sender: FDA-Public Use
  Company Number: CHPA2007US12256

PATIENT
  Age: 20 Month
  Sex: Male

DRUGS (1)
  1. TRIAMINIC CHEST + NASAL CONGESTION (NCH)(GUAIFENESIN, PHENYLEPHRINE HY [Suspect]
     Dosage: ORAL
     Route: 048
     Dates: start: 20071102, end: 20071105

REACTIONS (2)
  - CONVULSION [None]
  - INCORRECT DOSE ADMINISTERED [None]
